FAERS Safety Report 25531098 (Version 1)
Quarter: 2025Q3

REPORT INFORMATION
  Report Type: Report from Study
  Country: CO (occurrence: CO)
  Receive Date: 20250708
  Receipt Date: 20250708
  Transmission Date: 20251020
  Serious: Yes (Hospitalization)
  Sender: EISAI
  Company Number: CO-Eisai-EC-2025-192811

PATIENT
  Age: 70 Year
  Sex: Male
  Weight: 65.00 kg

DRUGS (3)
  1. LENVIMA [Suspect]
     Active Substance: LENVATINIB
     Indication: Thyroid cancer
     Dates: start: 20250219, end: 20250309
  2. LENVIMA [Suspect]
     Active Substance: LENVATINIB
     Dates: start: 20250321, end: 20250422
  3. LENVIMA [Suspect]
     Active Substance: LENVATINIB
     Dates: start: 20250603, end: 20250617

REACTIONS (6)
  - Inflammation [Not Recovered/Not Resolved]
  - Abdominal pain upper [Not Recovered/Not Resolved]
  - Diarrhoea [Not Recovered/Not Resolved]
  - Disorientation [Not Recovered/Not Resolved]
  - Gait inability [Not Recovered/Not Resolved]
  - Anal incontinence [Not Recovered/Not Resolved]

NARRATIVE: CASE EVENT DATE: 20250601
